FAERS Safety Report 5449462-1 (Version None)
Quarter: 2007Q3

REPORT INFORMATION
  Report Type: 
  Country: None (occurrence: None)
  Receive Date: 20070911
  Receipt Date: 20070830
  Transmission Date: 20080115
  Serious: Yes (Other)
  Sender: FDA-Public Use
  Company Number: US-PFIZER INC-2007073927

PATIENT
  Sex: Female
  Weight: 63.1 kg

DRUGS (3)
  1. CHANTIX [Suspect]
     Indication: SMOKING CESSATION THERAPY
  2. CARDIZEM [Concomitant]
  3. FUROSEMIDE [Concomitant]

REACTIONS (3)
  - FLATULENCE [None]
  - HYPERVIGILANCE [None]
  - NAUSEA [None]
